FAERS Safety Report 20796343 (Version 2)
Quarter: 2022Q2

REPORT INFORMATION
  Report Type: Report from Study
  Country: JP (occurrence: JP)
  Receive Date: 20220506
  Receipt Date: 20220607
  Transmission Date: 20220721
  Serious: Yes (Hospitalization, Other)
  Sender: FDA-Public Use
  Company Number: JP-PFIZER INC-2018335280

PATIENT
  Age: 9 Year
  Sex: Female
  Weight: 23 kg

DRUGS (30)
  1. BESPONSA [Suspect]
     Active Substance: INOTUZUMAB OZOGAMICIN
     Indication: Acute lymphocytic leukaemia recurrent
     Dosage: 0.8 MG/M2, DAILY, 1CYCLE
     Route: 041
     Dates: start: 20180815, end: 20180815
  2. BESPONSA [Suspect]
     Active Substance: INOTUZUMAB OZOGAMICIN
     Dosage: 0.5 MG/M2, DAILY, 1CYCLE
     Route: 041
     Dates: start: 20180822, end: 20180822
  3. BESPONSA [Suspect]
     Active Substance: INOTUZUMAB OZOGAMICIN
     Dosage: 0.5 MG/M2, DAILY, 1CYCLE
     Route: 041
     Dates: start: 20180829, end: 20180829
  4. BESPONSA [Suspect]
     Active Substance: INOTUZUMAB OZOGAMICIN
     Dosage: 0.5 MG/M2, DAILY, 2CYCLE
     Route: 041
     Dates: start: 20180905, end: 20180905
  5. BESPONSA [Suspect]
     Active Substance: INOTUZUMAB OZOGAMICIN
     Dosage: 0.5 MG/M2, 1X/DAY, 2CYCLE
     Route: 041
     Dates: start: 20180912, end: 20180912
  6. BESPONSA [Suspect]
     Active Substance: INOTUZUMAB OZOGAMICIN
     Dosage: 0.5 MG/M2, 1X/DAY, 2CYCLE
     Route: 041
     Dates: start: 20180919, end: 20180919
  7. BESPONSA [Suspect]
     Active Substance: INOTUZUMAB OZOGAMICIN
     Dosage: 0.5 MG/M2, 1X/DAY, 3 CYCLE
     Route: 041
     Dates: start: 20181003, end: 20181003
  8. BESPONSA [Suspect]
     Active Substance: INOTUZUMAB OZOGAMICIN
     Dosage: 0.5 MG/M2, 1X/DAY, 3 CYCLE
     Route: 041
     Dates: start: 20181017, end: 20181017
  9. BESPONSA [Suspect]
     Active Substance: INOTUZUMAB OZOGAMICIN
     Dosage: 0.5 MG/M2, 1X/DAY, 3 CYCLE
     Route: 041
     Dates: start: 20181031, end: 20181031
  10. BESPONSA [Suspect]
     Active Substance: INOTUZUMAB OZOGAMICIN
     Dosage: 0.5 MG/M2, 1X/DAY, 3 CYCLE
     Route: 041
     Dates: start: 20181114, end: 20181114
  11. BESPONSA [Suspect]
     Active Substance: INOTUZUMAB OZOGAMICIN
     Dosage: 0.5 MG/M2, 1X/DAY, 3 CYCLE
     Route: 041
     Dates: start: 20181205, end: 20181205
  12. BESPONSA [Suspect]
     Active Substance: INOTUZUMAB OZOGAMICIN
     Dosage: 0.5 MG/M2, 1X/DAY, 3 CYCLE
     Route: 041
     Dates: start: 20181219, end: 20181219
  13. BESPONSA [Suspect]
     Active Substance: INOTUZUMAB OZOGAMICIN
     Dosage: 0.5 MG/M2, 1X/DAY, 3 CYCLE
     Route: 041
     Dates: start: 20190123, end: 20190123
  14. BESPONSA [Suspect]
     Active Substance: INOTUZUMAB OZOGAMICIN
     Dosage: 0.5 MG/M2, 1X/DAY, 3 CYCLE
     Route: 041
     Dates: start: 20190227, end: 20190227
  15. BESPONSA [Suspect]
     Active Substance: INOTUZUMAB OZOGAMICIN
     Dosage: 0.5 MG/M2, 1X/DAY, 3 CYCLE
     Route: 041
     Dates: start: 20190403, end: 20190403
  16. METHOTREXATE [Suspect]
     Active Substance: METHOTREXATE
     Indication: Acute lymphocytic leukaemia
     Dosage: 12 MG, 1X/DAY
     Route: 037
     Dates: start: 20180806, end: 20180806
  17. METHOTREXATE [Suspect]
     Active Substance: METHOTREXATE
     Dosage: 12 MG, 1X/DAY
     Route: 037
     Dates: start: 20180904, end: 20180904
  18. METHOTREXATE [Suspect]
     Active Substance: METHOTREXATE
     Dosage: 12 MG, 1X/DAY
     Route: 037
     Dates: start: 20181002, end: 20181002
  19. CYTARABINE [Suspect]
     Active Substance: CYTARABINE
     Indication: Acute lymphocytic leukaemia
     Dosage: 30 MG, 1X/DAY
     Route: 037
     Dates: start: 20180806, end: 20180806
  20. CYTARABINE [Suspect]
     Active Substance: CYTARABINE
     Dosage: 30 MG, 1X/DAY
     Route: 037
     Dates: start: 20180904, end: 20180904
  21. CYTARABINE [Suspect]
     Active Substance: CYTARABINE
     Dosage: 30 MG, 1X/DAY
     Route: 037
     Dates: start: 20181002, end: 20181002
  22. PREDONINE [Suspect]
     Active Substance: PREDNISOLONE
     Indication: Acute lymphocytic leukaemia
     Dosage: 10 MG, 1X/DAY
     Route: 037
     Dates: start: 20180806, end: 20180806
  23. PREDONINE [Suspect]
     Active Substance: PREDNISOLONE
     Dosage: 10 MG, 1X/DAY
     Route: 037
     Dates: start: 20180904, end: 20180904
  24. PREDONINE [Suspect]
     Active Substance: PREDNISOLONE
     Dosage: 10 MG, 1X/DAY
     Route: 037
     Dates: start: 20181002, end: 20181002
  25. GRANISETRON [Concomitant]
     Active Substance: GRANISETRON
     Indication: Prophylaxis of nausea and vomiting
     Dosage: 1 MG, 1X/DAY
     Route: 042
     Dates: start: 20180806, end: 20181003
  26. GRANISETRON [Concomitant]
     Active Substance: GRANISETRON
     Indication: Antiemetic supportive care
  27. ATARAX-P [HYDROXYZINE EMBONATE] [Concomitant]
     Dosage: 25 MG, 1X/DAY
     Route: 042
     Dates: start: 2018, end: 20181003
  28. ACETAMINOPHEN [Concomitant]
     Active Substance: ACETAMINOPHEN
     Dosage: 250 MG, 1X/DAY
     Route: 042
     Dates: start: 20180815, end: 20181003
  29. CITOSOL [Concomitant]
     Active Substance: THIAMYLAL SODIUM
     Indication: Sedation
     Dosage: 0.2 G, 1X/DAY
     Route: 042
     Dates: start: 20180806, end: 20181002
  30. KETALAR [Concomitant]
     Active Substance: KETAMINE HYDROCHLORIDE
     Indication: Sedation
     Dosage: 50 MG, 1X/DAY
     Route: 042
     Dates: start: 20180806, end: 20181002

REACTIONS (8)
  - Myelosuppression [Recovered/Resolved]
  - Anaemia [Recovered/Resolved]
  - White blood cell count decreased [Recovered/Resolved]
  - Platelet count decreased [Recovered/Resolved]
  - Lymphocyte count decreased [Recovered/Resolved]
  - Neutrophil count decreased [Recovered/Resolved]
  - Pyrexia [Recovered/Resolved]
  - Viral infection [Recovered/Resolved]

NARRATIVE: CASE EVENT DATE: 20180813
